FAERS Safety Report 9280196 (Version 3)
Quarter: 2013Q2

REPORT INFORMATION
  Report Type: Report from Study
  Country: TW (occurrence: TW)
  Receive Date: 20130509
  Receipt Date: 20130603
  Transmission Date: 20140414
  Serious: Yes (Hospitalization)
  Sender: FDA-Public Use
  Company Number: TW-ROCHE-1187334

PATIENT
  Age: 52 Year
  Sex: Female
  Weight: 61.7 kg

DRUGS (8)
  1. TRASTUZUMAB EMTANSINE [Suspect]
     Indication: BREAST CANCER METASTATIC
     Dosage: DATE OF LAST DOSE PRIOR TO SAE: 24/JAN/2013.
     Route: 042
     Dates: start: 20130124, end: 20130204
  2. SILYMARIN [Concomitant]
     Route: 065
     Dates: start: 20130131
  3. SILYMARIN [Concomitant]
     Route: 065
     Dates: start: 20130115
  4. SILYMARIN [Concomitant]
     Route: 065
     Dates: start: 20130131, end: 20130318
  5. LORAZEPAM [Concomitant]
     Route: 065
     Dates: start: 20130131
  6. FUROSEMIDE [Concomitant]
     Route: 065
     Dates: start: 20130131
  7. TRANSAMIN [Concomitant]
     Route: 065
     Dates: start: 20130131
  8. CETIRIZINE HYDROCHLORIDE [Concomitant]
     Route: 065
     Dates: start: 20130131

REACTIONS (1)
  - Liver function test abnormal [Not Recovered/Not Resolved]
